FAERS Safety Report 10215176 (Version 2)
Quarter: 2014Q2

REPORT INFORMATION
  Report Type: Spontaneous
  Country: DE (occurrence: DE)
  Receive Date: 20140603
  Receipt Date: 20140613
  Transmission Date: 20141212
  Serious: Yes (Other)
  Sender: FDA-Public Use
  Company Number: GXKR2014DE002045

PATIENT
  Age: 21 Month
  Sex: Male
  Weight: 14 kg

DRUGS (1)
  1. AMOXIHEXAL FORTE [Suspect]
     Indication: PNEUMONIA
     Dosage: 250 MG, TID
     Route: 048
     Dates: start: 20140513, end: 20140522

REACTIONS (5)
  - Erythema multiforme [Recovered/Resolved]
  - Fatigue [Recovered/Resolved]
  - Joint effusion [Recovered/Resolved]
  - Arthralgia [Recovered/Resolved]
  - Walking disability [Recovered/Resolved]
